FAERS Safety Report 6006029-4 (Version None)
Quarter: 2008Q4

REPORT INFORMATION
  Report Type: 
  Country: None (occurrence: None)
  Receive Date: 20081217
  Receipt Date: 20071228
  Transmission Date: 20090506
  Serious: No
  Sender: FDA-Public Use
  Company Number: US-AMGEN-KDL258505

PATIENT
  Sex: Female

DRUGS (2)
  1. ENBREL [Suspect]
     Indication: RHEUMATOID ARTHRITIS
     Route: 058
     Dates: start: 20050101
  2. METHOTREXATE [Concomitant]
     Route: 048
     Dates: start: 19870101

REACTIONS (7)
  - ARTHRALGIA [None]
  - DIARRHOEA [None]
  - JOINT STIFFNESS [None]
  - JOINT SWELLING [None]
  - NAUSEA [None]
  - SINUSITIS [None]
  - VOMITING [None]
